FAERS Safety Report 24122699 (Version 1)
Quarter: 2024Q3

REPORT INFORMATION
  Report Type: Other
  Country: US (occurrence: US)
  Receive Date: 20240723
  Receipt Date: 20240723
  Transmission Date: 20241016
  Serious: Yes (Life-Threatening, Other)
  Sender: EMD SERONO INC
  Company Number: US-Merck Healthcare KGaA-2024038415

PATIENT
  Sex: Male

DRUGS (5)
  1. METFORMIN [Suspect]
     Active Substance: METFORMIN HYDROCHLORIDE
     Indication: Type 2 diabetes mellitus
     Route: 064
  2. BETAMETHASONE [Concomitant]
     Active Substance: BETAMETHASONE\BETAMETHASONE DIPROPIONATE
     Indication: Product used for unknown indication
     Route: 064
  3. MAGNESIUM SULFATE [Concomitant]
     Active Substance: MAGNESIUM SULFATE\MAGNESIUM SULFATE HEPTAHYDRATE
     Indication: Product used for unknown indication
     Route: 064
  4. AMPICILLIN [Concomitant]
     Active Substance: AMPICILLIN
     Indication: Product used for unknown indication
     Route: 064
  5. AZITHROMYCIN [Concomitant]
     Active Substance: AZITHROMYCIN
     Indication: Product used for unknown indication
     Route: 064

REACTIONS (9)
  - Neonatal respiratory distress [Recovered/Resolved]
  - Hyperleukocytosis [Recovered/Resolved]
  - Infantile apnoea [Recovered/Resolved]
  - Bronchopulmonary dysplasia [Recovered/Resolved]
  - Anaemia neonatal [Recovered/Resolved]
  - Osteopenia [Recovered/Resolved]
  - Premature baby [Recovered/Resolved]
  - Human herpes virus 6 serology positive [Recovered/Resolved]
  - Foetal exposure during pregnancy [Recovered/Resolved]
